FAERS Safety Report 5224170-0 (Version None)
Quarter: 2007Q1

REPORT INFORMATION
  Report Type: 
  Country: None (occurrence: None)
  Receive Date: 20070126
  Receipt Date: 20070115
  Transmission Date: 20070707
  Serious: Yes (Hospitalization)
  Sender: FDA-Public Use
  Company Number: 15534

PATIENT
  Sex: Female

DRUGS (3)
  1. METHOTREXATE [Suspect]
     Indication: PUSTULAR PSORIASIS
     Dates: start: 20061005
  2. FOLIC ACID [Suspect]
     Indication: PUSTULAR PSORIASIS
     Dates: start: 20061006
  3. REMICADE [Suspect]
     Indication: BEHCET'S SYNDROME
     Dates: start: 20060501, end: 20060901

REACTIONS (3)
  - HYPERSENSITIVITY [None]
  - PUSTULAR PSORIASIS [None]
  - WHITE BLOOD CELL COUNT INCREASED [None]
